FAERS Safety Report 5959033-6 (Version None)
Quarter: 2008Q4

REPORT INFORMATION
  Report Type: 
  Country: None (occurrence: None)
  Receive Date: 20081120
  Receipt Date: 20081113
  Transmission Date: 20090506
  Serious: Yes (Other)
  Sender: FDA-Public Use
  Company Number: US-JNJFOC-20081103636

PATIENT
  Age: 50 Year
  Sex: Male
  Weight: 90.72 kg

DRUGS (4)
  1. TYLENOL COUGH AND SORE THROAT DAYTIME COOL BURST BERRY [Suspect]
     Indication: NASOPHARYNGITIS
     Route: 048
  2. TYLENOL COUGH AND SORE THROAT DAYTIME COOL BURST BERRY [Suspect]
     Indication: OROPHARYNGEAL PAIN
     Route: 048
  3. LANTUS [Concomitant]
     Indication: TYPE 1 DIABETES MELLITUS
     Dosage: 50 UNITS CONTINUOUS VIA PUMP
  4. SIMVASTATIN [Concomitant]
     Indication: HYPERCHOLESTEROLAEMIA

REACTIONS (1)
  - BLOOD GLUCOSE INCREASED [None]
